FAERS Safety Report 5867563-0 (Version None)
Quarter: 2008Q3

REPORT INFORMATION
  Report Type: 
  Country: None (occurrence: None)
  Receive Date: 20080902
  Receipt Date: 20071001
  Transmission Date: 20090109
  Serious: No
  Sender: FDA-Public Use
  Company Number: US-ABBOTT-07P-163-0419245-00

PATIENT
  Sex: Male
  Weight: 98 kg

DRUGS (1)
  1. DEPAKOTE ER [Suspect]
     Indication: EPILEPSY
     Route: 048
     Dates: start: 20000101

REACTIONS (2)
  - LOSS OF LIBIDO [None]
  - WEIGHT INCREASED [None]
